FAERS Safety Report 9571352 (Version 1)
Quarter: 2013Q3

REPORT INFORMATION
  Report Type: Spontaneous
  Country: US (occurrence: None)
  Receive Date: 20130927
  Receipt Date: 20130927
  Transmission Date: 20140515
  Serious: Yes (Hospitalization, Disabling, Other)
  Sender: FDA-Public Use
  Company Number: None

PATIENT
  Age: 49 Year
  Sex: Female
  Weight: 61.24 kg

DRUGS (2)
  1. HYDROCODONE [Suspect]
     Indication: POSTOPERATIVE CARE
     Dosage: 1 TABLET, THREE TIMES DAILY, TAKEN BY MOUTH
     Route: 048
     Dates: start: 20090313, end: 20090317
  2. SEROQUEL [Suspect]
     Indication: BIPOLAR DISORDER
     Route: 048
     Dates: start: 20100101, end: 20101230

REACTIONS (8)
  - Mania [None]
  - Dysgraphia [None]
  - Compulsive shopping [None]
  - Aggression [None]
  - Aggression [None]
  - Agitation [None]
  - Epilepsy [None]
  - Akathisia [None]
